FAERS Safety Report 15517701 (Version 4)
Quarter: 2019Q3

REPORT INFORMATION
  Report Type: Spontaneous
  Country: CA (occurrence: CA)
  Receive Date: 20181017
  Receipt Date: 20190905
  Transmission Date: 20191004
  Serious: Yes (Other)
  Sender: FDA-Public Use
  Company Number: CA-TEVA-2018-CA-963390

PATIENT
  Age: 55 Year
  Sex: Female

DRUGS (12)
  1. TEVA-CYCLOSPORINE [Suspect]
     Active Substance: CYCLOSPORINE
     Indication: DRY EYE
     Dosage: 2 GTT DAILY; OPHTHALMIC EMULSION, 0.05%
     Route: 047
     Dates: start: 20180901, end: 20181017
  2. HYDROXYZINE 25MG [Concomitant]
     Dosage: 100 MILLIGRAM DAILY;
     Route: 048
  3. ESTRAGEL [Concomitant]
     Dosage: 3 PUMPS DAILY
     Route: 061
  4. INDAPAMIDE. [Concomitant]
     Active Substance: INDAPAMIDE
     Dosage: 1.25 MILLIGRAM DAILY;
     Route: 048
  5. DICLOFENAC [Concomitant]
     Active Substance: DICLOFENAC
     Route: 061
  6. TRAZODONE HYDROCHLORIDE. [Concomitant]
     Active Substance: TRAZODONE HYDROCHLORIDE
     Dosage: 50 MILLIGRAM DAILY;
     Route: 048
  7. RABEPRAZOLE [Concomitant]
     Active Substance: RABEPRAZOLE
     Dosage: 20 MILLIGRAM DAILY;
     Route: 048
  8. CYCLOBENZAPRINE. [Concomitant]
     Active Substance: CYCLOBENZAPRINE
     Dosage: 30 MILLIGRAM DAILY; AS NEEDED
     Route: 048
  9. COVERSYL [Concomitant]
     Active Substance: PERINDOPRIL
     Dosage: 8 MILLIGRAM DAILY;
     Route: 048
  10. ALREX [Concomitant]
     Active Substance: LOTEPREDNOL ETABONATE
     Dosage: 2 GTT DAILY;
     Route: 047
  11. PATADAY [Concomitant]
     Active Substance: OLOPATADINE HYDROCHLORIDE
     Dosage: 2 GTT DAILY;
     Route: 047
  12. RUPALL [Concomitant]
     Active Substance: RUPATADINE FUMARATE
     Route: 048

REACTIONS (9)
  - Eye infection [Not Recovered/Not Resolved]
  - Product substitution issue [Not Recovered/Not Resolved]
  - Product packaging difficult to open [Not Recovered/Not Resolved]
  - Erythema [Not Recovered/Not Resolved]
  - Endophthalmitis [Not Recovered/Not Resolved]
  - Pain [Not Recovered/Not Resolved]
  - Eye irritation [Not Recovered/Not Resolved]
  - Discomfort [Not Recovered/Not Resolved]
  - Product container issue [Not Recovered/Not Resolved]

NARRATIVE: CASE EVENT DATE: 201810
